FAERS Safety Report 5033720-9 (Version None)
Quarter: 2006Q2

REPORT INFORMATION
  Report Type: 
  Country: None (occurrence: None)
  Receive Date: 20060620
  Receipt Date: 20060608
  Transmission Date: 20061013
  Serious: Yes (Death, Hospitalization)
  Sender: FDA-Public Use
  Company Number: 2006-BP-06477RO

PATIENT
  Age: 68 Year
  Sex: Male

DRUGS (5)
  1. MORPHINE SUL TAB [Suspect]
     Indication: PAIN
     Dates: end: 20060401
  2. COVERSYL (PERINDOPRIL) [Suspect]
     Dosage: 8 MG (4 MG, 2 IN 1 D), PO
     Route: 048
     Dates: end: 20060401
  3. POTASSIUM CHLORIDE [Suspect]
     Dosage: PO
     Route: 048
     Dates: end: 20060401
  4. PREVISCAN (FLUINDIONE) [Suspect]
  5. LASIX [Concomitant]

REACTIONS (9)
  - DYSPNOEA [None]
  - HYPERKALAEMIA [None]
  - INFLAMMATION [None]
  - OVERDOSE [None]
  - PAROXYSMAL ARRHYTHMIA [None]
  - RENAL FAILURE ACUTE [None]
  - SKIN LESION [None]
  - URINARY RETENTION [None]
  - WHITE BLOOD CELL COUNT INCREASED [None]
